FAERS Safety Report 8334519 (Version 2)
Quarter: 2013Q3

REPORT INFORMATION
  Report Type: Spontaneous
  Country: US (occurrence: US)
  Receive Date: 20120112
  Receipt Date: 20130924
  Transmission Date: 20140515
  Serious: Yes (Other)
  Sender: FDA-Public Use
  Company Number: US-ROCHE-794441

PATIENT
  Age: 39 Year
  Sex: Female
  Weight: 59.93 kg

DRUGS (10)
  1. ACCUTANE [Suspect]
     Indication: ACNE
     Route: 065
  2. ACCUTANE [Suspect]
     Route: 065
     Dates: start: 20030109, end: 20030217
  3. ACCUTANE [Suspect]
     Route: 065
     Dates: start: 20030217, end: 20030307
  4. ACCUTANE [Suspect]
     Route: 065
     Dates: start: 20030307, end: 20030407
  5. ACCUTANE [Suspect]
     Route: 065
     Dates: start: 20030407, end: 20030505
  6. ACCUTANE [Suspect]
     Route: 065
     Dates: start: 20030505, end: 20030707
  7. ACCUTANE [Suspect]
     Route: 065
     Dates: start: 20080513, end: 20080612
  8. ACCUTANE [Suspect]
     Dosage: ALTERNATE DAY 80 MG AND 60 MG
     Route: 065
     Dates: start: 20080612, end: 20080710
  9. ACCUTANE [Suspect]
     Route: 065
     Dates: start: 20080710, end: 20080915
  10. ACCUTANE [Suspect]
     Dosage: ALTERNATE 120 MG AND 80 MG
     Route: 065

REACTIONS (11)
  - Inflammatory bowel disease [Unknown]
  - Irritable bowel syndrome [Unknown]
  - Emotional distress [Not Recovered/Not Resolved]
  - Depression [Unknown]
  - Post-traumatic stress disorder [Unknown]
  - Dry skin [Unknown]
  - Chapped lips [Unknown]
  - Nasal dryness [Unknown]
  - Arthralgia [Unknown]
  - Lip dry [Unknown]
  - Blood cholesterol increased [Unknown]
